FAERS Safety Report 16398797 (Version 4)
Quarter: 2020Q4

REPORT INFORMATION
  Report Type: Report from Study
  Country: None (occurrence: CA)
  Receive Date: 20190606
  Receipt Date: 20201123
  Transmission Date: 20210113
  Serious: Yes (Hospitalization)
  Sender: FDA-Public Use
  Company Number: CA-ABBVIE-19K-028-2804902-00

PATIENT
  Age: 61 Year
  Sex: Male

DRUGS (18)
  1. IMBRUVICA [Suspect]
     Active Substance: IBRUTINIB
     Indication: CHRONIC LYMPHOCYTIC LEUKAEMIA
     Route: 048
     Dates: start: 20161207
  2. PANTOPRAZOLE [Concomitant]
     Active Substance: PANTOPRAZOLE
     Indication: PRODUCT USED FOR UNKNOWN INDICATION
     Route: 048
  3. RAMIPRIL. [Concomitant]
     Active Substance: RAMIPRIL
     Indication: PRODUCT USED FOR UNKNOWN INDICATION
     Route: 048
  4. METOPROLOL. [Concomitant]
     Active Substance: METOPROLOL
     Indication: PRODUCT USED FOR UNKNOWN INDICATION
     Route: 048
  5. VENCLEXTA [Interacting]
     Active Substance: VENETOCLAX
     Route: 048
     Dates: start: 20190605, end: 201906
  6. VENCLEXTA [Interacting]
     Active Substance: VENETOCLAX
     Route: 048
     Dates: start: 20190612
  7. TAMSULOSIN [Concomitant]
     Active Substance: TAMSULOSIN
     Indication: PRODUCT USED FOR UNKNOWN INDICATION
  8. VENCLEXTA [Interacting]
     Active Substance: VENETOCLAX
     Route: 048
     Dates: start: 20190526, end: 201905
  9. VALACYCLOVIR [Concomitant]
     Active Substance: VALACYCLOVIR HYDROCHLORIDE
     Indication: PRODUCT USED FOR UNKNOWN INDICATION
  10. METOPROLOL. [Concomitant]
     Active Substance: METOPROLOL
     Route: 048
  11. OXYCODONE [Concomitant]
     Active Substance: OXYCODONE
     Dosage: 0.5CO Q6H PRN
     Route: 048
  12. AVAMYS [Concomitant]
     Active Substance: FLUTICASONE FUROATE
     Indication: PRODUCT USED FOR UNKNOWN INDICATION
     Dosage: AS NEEDED
  13. VENCLEXTA [Interacting]
     Active Substance: VENETOCLAX
     Indication: CHRONIC LYMPHOCYTIC LEUKAEMIA
     Route: 048
     Dates: start: 20190521, end: 201905
  14. OXYCODONE [Concomitant]
     Active Substance: OXYCODONE
     Indication: PRODUCT USED FOR UNKNOWN INDICATION
     Route: 048
  15. PREGABALIN. [Concomitant]
     Active Substance: PREGABALIN
     Indication: PRODUCT USED FOR UNKNOWN INDICATION
     Route: 048
  16. VENCLEXTA [Interacting]
     Active Substance: VENETOCLAX
     Route: 048
     Dates: start: 20190529, end: 201906
  17. FUROSEMIDE. [Concomitant]
     Active Substance: FUROSEMIDE
     Indication: PRODUCT USED FOR UNKNOWN INDICATION
     Route: 048
  18. ELIQUIS [Concomitant]
     Active Substance: APIXABAN
     Indication: PRODUCT USED FOR UNKNOWN INDICATION

REACTIONS (14)
  - Arrhythmia [Recovered/Resolved]
  - Pollakiuria [Recovered/Resolved]
  - Lymph node pain [Unknown]
  - Hospitalisation [Unknown]
  - Drug interaction [Unknown]
  - Poor quality sleep [Unknown]
  - Confusional state [Recovered/Resolved]
  - Frequent bowel movements [Recovered/Resolved]
  - Lymph node pain [Not Recovered/Not Resolved]
  - Atrial fibrillation [Unknown]
  - Lymphadenopathy [Unknown]
  - Hot flush [Recovered/Resolved]
  - Pain [Unknown]
  - Chronic lymphocytic leukaemia [Unknown]

NARRATIVE: CASE EVENT DATE: 2019
